FAERS Safety Report 7346158-6 (Version None)
Quarter: 2011Q1

REPORT INFORMATION
  Report Type: 
  Country: None (occurrence: None)
  Receive Date: 20110311
  Receipt Date: 20110225
  Transmission Date: 20110831
  Serious: Yes (Hospitalization)
  Sender: FDA-Public Use
  Company Number: PHHY2011AU11390

PATIENT
  Sex: Female

DRUGS (5)
  1. DILTIAZEM [Concomitant]
     Indication: BLOOD PRESSURE INCREASED
     Dosage: 600 MG, BD
  2. CLOZARIL [Suspect]
     Indication: SCHIZOPHRENIA
     Dosage: 200 MG
     Route: 048
     Dates: start: 20081119
  3. AMIODARONE [Concomitant]
     Dosage: 2000 MG, BD
  4. DULOXETINE [Concomitant]
     Indication: DEPRESSION
     Dosage: 60 MG, QD
  5. ATORVASTATIN [Concomitant]
     Indication: BLOOD CHOLESTEROL INCREASED
     Dosage: 20 MG, QD

REACTIONS (3)
  - PSYCHOTIC DISORDER [None]
  - PARANOIA [None]
  - STRESS [None]
